FAERS Safety Report 5193278-0 (Version None)
Quarter: 2006Q4

REPORT INFORMATION
  Report Type: 
  Country: None (occurrence: None)
  Receive Date: 20061228
  Receipt Date: 20060821
  Transmission Date: 20070319
  Serious: No
  Sender: FDA-Public Use
  Company Number: US-GLAXOSMITHKLINE-A0617364A

PATIENT
  Age: 50 Year
  Sex: Male
  Weight: 95.5 kg

DRUGS (1)
  1. AVODART [Suspect]
     Indication: DRUG USE FOR UNKNOWN INDICATION
     Dosage: .5MG UNKNOWN
     Route: 048
     Dates: start: 20060201, end: 20060601

REACTIONS (2)
  - PEYRONIE'S DISEASE [None]
  - SKIN DISORDER [None]
